FAERS Safety Report 14109794 (Version 1)
Quarter: 2017Q4

REPORT INFORMATION
  Report Type: Spontaneous
  Country: US (occurrence: US)
  Receive Date: 20171020
  Receipt Date: 20171020
  Transmission Date: 20180321
  Serious: No
  Sender: FDA-Public Use
  Company Number: US-TEVA-724862ACC

PATIENT
  Sex: Female
  Weight: 56.75 kg

DRUGS (1)
  1. ESTRADIOL TABLETS, USP [Suspect]
     Active Substance: ESTRADIOL
     Indication: MENOPAUSAL SYMPTOMS

REACTIONS (3)
  - Drug ineffective [Unknown]
  - Hot flush [Recovered/Resolved]
  - Night sweats [Recovered/Resolved]
